FAERS Safety Report 22038135 (Version 1)
Quarter: 2023Q1

REPORT INFORMATION
  Report Type: Spontaneous
  Country: US (occurrence: US)
  Receive Date: 20230227
  Receipt Date: 20230227
  Transmission Date: 20230418
  Serious: No
  Sender: FDA-Public Use
  Company Number: US-IGSA-BIG0017561

PATIENT
  Age: 49 Year
  Sex: Female
  Weight: 156 kg

DRUGS (27)
  1. PROLASTIN-C LIQUID [Suspect]
     Active Substance: .ALPHA.1-PROTEINASE INHIBITOR HUMAN
     Indication: Alpha-1 antitrypsin deficiency
     Dosage: 60 MILLIGRAM/KILOGRAM, Q.WK.
     Route: 042
     Dates: start: 20220126
  2. PROLASTIN-C LIQUID [Suspect]
     Active Substance: .ALPHA.1-PROTEINASE INHIBITOR HUMAN
     Dosage: 9360 MILLIGRAM, Q.WK.
     Route: 042
     Dates: start: 20220215, end: 20220223
  3. PROLASTIN-C LIQUID [Suspect]
     Active Substance: .ALPHA.1-PROTEINASE INHIBITOR HUMAN
     Dosage: 9360 MILLIGRAM, Q.WK.
     Route: 042
     Dates: start: 20220223
  4. PROLASTIN-C LIQUID [Suspect]
     Active Substance: .ALPHA.1-PROTEINASE INHIBITOR HUMAN
     Dosage: 9060 MILLIGRAM, Q.WK.
     Route: 042
     Dates: start: 20220309
  5. BUDESONIDE [Concomitant]
     Active Substance: BUDESONIDE
  6. MONTELUKAST [Concomitant]
     Active Substance: MONTELUKAST SODIUM
  7. PREDNISONE [Concomitant]
     Active Substance: PREDNISONE
  8. DUONEB [Concomitant]
     Active Substance: ALBUTEROL SULFATE\IPRATROPIUM BROMIDE
  9. AMITRIPTYLINE [Concomitant]
     Active Substance: AMITRIPTYLINE
  10. CETIRIZINE [Concomitant]
     Active Substance: CETIRIZINE HYDROCHLORIDE
  11. TRAMADOL [Concomitant]
     Active Substance: TRAMADOL
  12. GABAPENTIN [Concomitant]
     Active Substance: GABAPENTIN
  13. ROSUVASTATIN [Concomitant]
     Active Substance: ROSUVASTATIN
  14. ESOMEPRAZOLE [Concomitant]
     Active Substance: ESOMEPRAZOLE
  15. EFFEXOR [Concomitant]
     Active Substance: VENLAFAXINE HYDROCHLORIDE
  16. CYCLOBENZAPRINE [Concomitant]
     Active Substance: CYCLOBENZAPRINE
  17. METOLAZONE [Concomitant]
     Active Substance: METOLAZONE
  18. HYOSCYAMINE [Concomitant]
     Active Substance: HYOSCYAMINE
  19. FUROSEMIDE [Concomitant]
     Active Substance: FUROSEMIDE
  20. OZEMPIC [Concomitant]
     Active Substance: SEMAGLUTIDE
  21. HYDROXYCHLOROQUINE [Concomitant]
     Active Substance: HYDROXYCHLOROQUINE
  22. ARIPIPRAZOLE [Concomitant]
     Active Substance: ARIPIPRAZOLE
  23. HEPARIN LOCK FLUSH [Concomitant]
     Active Substance: HEPARIN SODIUM
  24. LIDOCAINE\PRILOCAINE [Concomitant]
     Active Substance: LIDOCAINE\PRILOCAINE
  25. METRONIDAZOLE [Concomitant]
     Active Substance: METRONIDAZOLE
  26. POTASSIUM CHLORIDE [Concomitant]
     Active Substance: POTASSIUM CHLORIDE
  27. VITAMIN D NOS [Concomitant]
     Active Substance: VITAMIN D NOS

REACTIONS (6)
  - Myalgia [Not Recovered/Not Resolved]
  - Arthralgia [Not Recovered/Not Resolved]
  - Muscular weakness [Not Recovered/Not Resolved]
  - Fall [Not Recovered/Not Resolved]
  - Nausea [Not Recovered/Not Resolved]
  - Vomiting [Not Recovered/Not Resolved]

NARRATIVE: CASE EVENT DATE: 20220127
